FAERS Safety Report 4701566-4 (Version None)
Quarter: 2005Q2

REPORT INFORMATION
  Report Type: 
  Country: None (occurrence: None)
  Receive Date: 20050628
  Receipt Date: 20050316
  Transmission Date: 20051028
  Serious: Yes (Other)
  Sender: FDA-Public Use
  Company Number: 2005GB00562

PATIENT
  Age: 15323 Day
  Sex: Male

DRUGS (2)
  1. NEXIUM [Suspect]
     Dosage: ON AND OFF
     Route: 048
     Dates: start: 20010101
  2. METOCLOPRAMIDE [Concomitant]
     Indication: REFLUX OESOPHAGITIS

REACTIONS (1)
  - AZOOSPERMIA [None]
